FAERS Safety Report 7093593-X (Version None)
Quarter: 2010Q4

REPORT INFORMATION
  Report Type: 
  Country: None (occurrence: None)
  Receive Date: 20101110
  Receipt Date: 20101029
  Transmission Date: 20110411
  Serious: Yes (Death)
  Sender: FDA-Public Use
  Company Number: IT-ROCHE-734246

PATIENT
  Sex: Male

DRUGS (9)
  1. XELODA [Suspect]
     Dosage: DOSE: 625 MG/MQ (4+4 TAB), FREQUENCY: DAILY.
     Route: 048
     Dates: start: 20100427
  2. XELODA [Suspect]
     Dosage: DOSE 3+2 TABLET,
     Route: 048
     Dates: start: 20100128, end: 20100906
  3. OXALIPLATIN [Concomitant]
     Dosage: FREQUNCY: CYCLE, DOSE 4+4 TAB,
     Route: 065
     Dates: start: 20100427
  4. OXALIPLATIN [Concomitant]
     Dosage: DOSE 3+2 TABLET
     Route: 065
     Dates: start: 20100628
  5. GEMCITABINE [Concomitant]
     Dosage: FREQUENCY: CYCLE, DOSE REPORTED AS 4 + 4 TAB.
     Dates: start: 20100427
  6. GEMCITABINE [Concomitant]
     Dosage: DOSE 3+2 TABLET
     Dates: start: 20100128
  7. LORTAAN [Concomitant]
  8. ZANEDIP [Concomitant]
  9. CONGESCOR [Concomitant]

REACTIONS (2)
  - CEREBRAL HAEMATOMA [None]
  - PLATELET DISORDER [None]
